FAERS Safety Report 14641218 (Version 2)
Quarter: 2018Q1

REPORT INFORMATION
  Report Type: Spontaneous
  Country: JO (occurrence: JO)
  Receive Date: 20180315
  Receipt Date: 20180315
  Transmission Date: 20180509
  Serious: Yes (Other)
  Sender: FDA-Public Use
  Company Number: JO-009507513-1803JOR006403

PATIENT
  Age: 24 Year
  Sex: Female

DRUGS (2)
  1. METFORMIN [Suspect]
     Active Substance: METFORMIN HYDROCHLORIDE
     Indication: POLYCYSTIC OVARIES
     Dosage: DAILY DOSE 750 (UNIT NOT PROVIDED)
     Route: 065
     Dates: start: 201710, end: 201801
  2. GRACIAL [Suspect]
     Active Substance: DESOGESTREL\ETHINYL ESTRADIOL
     Indication: POLYCYSTIC OVARIES
     Dosage: UNK
     Route: 065
     Dates: start: 201710, end: 201801

REACTIONS (3)
  - Product use in unapproved indication [Unknown]
  - Acne [Recovered/Resolved with Sequelae]
  - Weight increased [Recovered/Resolved with Sequelae]
